FAERS Safety Report 17802737 (Version 1)
Quarter: 2020Q2

REPORT INFORMATION
  Report Type: Report from Study
  Country: ES (occurrence: ES)
  Receive Date: 20200519
  Receipt Date: 20200519
  Transmission Date: 20200714
  Serious: Yes (Hospitalization)
  Sender: FDA-Public Use
  Company Number: ES-ROCHE-2405582

PATIENT
  Age: 52 Year
  Sex: Female
  Weight: 59 kg

DRUGS (4)
  1. PERTUZUMAB. [Suspect]
     Active Substance: PERTUZUMAB
     Indication: BREAST CANCER
     Dosage: MOST RECENT DOSE OF PERTUZUMAB PRIOR TO ONSET OF AE (ADVERSE EVENT): 29/AUG/2019?CYCLE 5 DAY 1
     Route: 042
     Dates: start: 20161019
  2. CARBOPLATIN. [Suspect]
     Active Substance: CARBOPLATIN
     Indication: BREAST CANCER
     Dosage: MOST RECENT DOSE ON 29/AUG/2019
     Route: 042
     Dates: start: 20190530
  3. DOCETAXEL. [Suspect]
     Active Substance: DOCETAXEL
     Indication: BREAST CANCER
     Dosage: MOST RECENT DOSE ON 29/AUG/2019
     Route: 042
     Dates: start: 20190530
  4. TRASTUZUMAB. [Suspect]
     Active Substance: TRASTUZUMAB
     Indication: BREAST CANCER
     Dosage: MOST RECENT DOSE OF TRASTUZUMAB PRIOR TO ONSET OF AE (ADVERSE EVENT): 29/AUG/2019?CYCLE 5 DAY 1
     Route: 058
     Dates: start: 20191019

REACTIONS (1)
  - Gastritis [Recovered/Resolved]

NARRATIVE: CASE EVENT DATE: 20190919
